FAERS Safety Report 12611462 (Version 1)
Quarter: 2016Q3

REPORT INFORMATION
  Report Type: Spontaneous
  Country: ES (occurrence: ES)
  Receive Date: 20160801
  Receipt Date: 20160801
  Transmission Date: 20161109
  Serious: Yes (Life-Threatening, Other)
  Sender: FDA-Public Use
  Company Number: ES-WATSON-2016-16705

PATIENT
  Age: 65 Year
  Sex: Female

DRUGS (4)
  1. LORATADINE (UNKNOWN) [Suspect]
     Active Substance: LORATADINE
     Indication: RASH PRURITIC
     Dosage: 10 MG, Q24H
     Route: 048
  2. FLECAINIDE (UNKNOWN) [Interacting]
     Active Substance: FLECAINIDE
     Indication: ATRIAL FIBRILLATION
     Dosage: 50 MG, BID( Q12H)
     Route: 065
  3. HYDROXYZINE [Interacting]
     Active Substance: HYDROXYZINE\HYDROXYZINE HYDROCHLORIDE
     Indication: RASH PRURITIC
     Dosage: 25 MG, Q24H
     Route: 048
  4. BISOPROLOL [Concomitant]
     Active Substance: BISOPROLOL
     Indication: ATRIAL FIBRILLATION
     Dosage: 2.5 MG, BID( Q 12H)
     Route: 065

REACTIONS (4)
  - Drug interaction [Recovered/Resolved]
  - Torsade de pointes [Recovered/Resolved]
  - Cardiac arrest [Recovered/Resolved]
  - Electrocardiogram QT prolonged [Recovered/Resolved]
